FAERS Safety Report 15113523 (Version 2)
Quarter: 2018Q3

REPORT INFORMATION
  Report Type: Spontaneous
  Country: US (occurrence: US)
  Receive Date: 20180706
  Receipt Date: 20180711
  Transmission Date: 20181010
  Serious: Yes (Death)
  Sender: FDA-Public Use
  Company Number: US-ROCHE-2149893

PATIENT
  Sex: Male
  Weight: 103.06 kg

DRUGS (1)
  1. RITUXAN [Suspect]
     Active Substance: RITUXIMAB
     Indication: NON-HODGKIN^S LYMPHOMA
     Dosage: INFUSE 830 MG AT MDO ON DAY1 OF 28DAY CYCLE?100MG/10ML
     Route: 065
     Dates: start: 20180202

REACTIONS (1)
  - Death [Fatal]
